FAERS Safety Report 7433317-7 (Version None)
Quarter: 2011Q2

REPORT INFORMATION
  Report Type: 
  Country: None (occurrence: None)
  Receive Date: 20110415
  Receipt Date: 20110401
  Transmission Date: 20111010
  Serious: Yes (Other)
  Sender: FDA-Public Use
  Company Number: 030568

PATIENT
  Sex: Female

DRUGS (4)
  1. LAMOTRIGINE [Concomitant]
  2. TOPIRAMATE [Concomitant]
  3. LEVETIRACETAM [Suspect]
     Indication: EPILEPSY
     Dosage: (4000)
  4. ZONISAMIDE [Concomitant]

REACTIONS (2)
  - DRUG EXPOSURE DURING PREGNANCY [None]
  - ABORTION SPONTANEOUS [None]
